FAERS Safety Report 11692324 (Version 2)
Quarter: 2018Q3

REPORT INFORMATION
  Report Type: Spontaneous
  Country: IT (occurrence: IT)
  Receive Date: 20151103
  Receipt Date: 20180924
  Transmission Date: 20181010
  Serious: Yes (Other)
  Sender: FDA-Public Use
  Company Number: IT-AUROBINDO-AUR-APL-2015-09879

PATIENT

DRUGS (1)
  1. OMEPRAZOLE. [Suspect]
     Active Substance: OMEPRAZOLE
     Indication: PRODUCT USED FOR UNKNOWN INDICATION
     Dosage: 80 MG DAILY
     Route: 048

REACTIONS (8)
  - Renal impairment [Unknown]
  - Chest discomfort [Unknown]
  - Blood pressure increased [Unknown]
  - Renal pain [Unknown]
  - Apathy [Unknown]
  - Sleep disorder [Unknown]
  - Fatigue [Unknown]
  - Weight decreased [Unknown]
